FAERS Safety Report 8278427-X (Version None)
Quarter: 2012Q2

REPORT INFORMATION
  Report Type: 
  Country: None (occurrence: None)
  Receive Date: 20120412
  Receipt Date: 20111017
  Transmission Date: 20120825
  Serious: No
  Sender: FDA-Public Use
  Company Number: US-ASTRAZENECA-2011SE57092

PATIENT
  Age: 63 Year
  Sex: Female

DRUGS (2)
  1. NEXIUM [Suspect]
     Route: 048
     Dates: start: 20010101, end: 20110301
  2. PRILOSEC OTC [Suspect]
     Route: 048

REACTIONS (6)
  - DYSPHAGIA [None]
  - GASTROOESOPHAGEAL REFLUX DISEASE [None]
  - DISEASE RECURRENCE [None]
  - DYSPEPSIA [None]
  - OESOPHAGEAL PAIN [None]
  - DRUG DOSE OMISSION [None]
